FAERS Safety Report 23393709 (Version 1)
Quarter: 2024Q1

REPORT INFORMATION
  Report Type: Spontaneous
  Country: US (occurrence: None)
  Receive Date: 20240111
  Receipt Date: 20240111
  Transmission Date: 20240410
  Serious: Yes (Life-Threatening)
  Sender: FDA-Public Use
  Company Number: None

PATIENT
  Age: 7 Year
  Sex: Male

DRUGS (8)
  1. CHILDRENS LORATADINE [Suspect]
     Active Substance: LORATADINE
     Indication: Seasonal allergy
     Dates: start: 20210816, end: 20231227
  2. CHILDRENS LORATADINE [Suspect]
     Active Substance: LORATADINE
     Indication: Food allergy
  3. CHILDRENS LORATADINE [Suspect]
     Active Substance: LORATADINE
     Indication: Multiple allergies
  4. CHILDRENS ZYRTEC [Suspect]
     Active Substance: CETIRIZINE HYDROCHLORIDE
  5. CHILDRENS BENADRYL ALLERGY [Suspect]
     Active Substance: DIPHENHYDRAMINE HYDROCHLORIDE
  6. EPIPEN [Concomitant]
     Active Substance: EPINEPHRINE
  7. FLONASE [Concomitant]
     Active Substance: FLUTICASONE PROPIONATE
  8. pataday OTC eyedrops [Concomitant]

REACTIONS (17)
  - Suicidal ideation [None]
  - Intentional self-injury [None]
  - Face injury [None]
  - Skin laceration [None]
  - Frustration tolerance decreased [None]
  - Psychomotor hyperactivity [None]
  - Nervousness [None]
  - Headache [None]
  - Epistaxis [None]
  - Antisocial behaviour [None]
  - Somnolence [None]
  - Confusional state [None]
  - Somnambulism [None]
  - Daydreaming [None]
  - Abnormal behaviour [None]
  - Derealisation [None]
  - Food allergy [None]

NARRATIVE: CASE EVENT DATE: 20230921
